FAERS Safety Report 6782079-5 (Version None)
Quarter: 2010Q2

REPORT INFORMATION
  Report Type: 
  Country: None (occurrence: None)
  Receive Date: 20100621
  Receipt Date: 20100608
  Transmission Date: 20101027
  Serious: Yes (Hospitalization)
  Sender: FDA-Public Use
  Company Number: B0661318A

PATIENT
  Sex: Female
  Weight: 73 kg

DRUGS (4)
  1. LAPATINIB [Suspect]
     Indication: BREAST CANCER
     Dosage: 1000MG PER DAY
     Route: 048
     Dates: start: 20100216
  2. EPIRUBICIN [Suspect]
     Indication: BREAST CANCER
     Dosage: 168MG EVERY 3 WEEKS
     Route: 042
     Dates: start: 20100216
  3. CYCLOPHOSPHAMIDE [Suspect]
     Indication: BREAST CANCER
     Dosage: 1122MG EVERY 3 WEEKS
     Route: 042
     Dates: start: 20100216
  4. DOCETAXEL [Suspect]
     Indication: BREAST CANCER
     Dosage: 187MG EVERY 3 WEEKS
     Route: 042
     Dates: start: 20100511

REACTIONS (9)
  - CHILLS [None]
  - DECREASED APPETITE [None]
  - GAIT DISTURBANCE [None]
  - GENERAL PHYSICAL HEALTH DETERIORATION [None]
  - OLIGODIPSIA [None]
  - PNEUMONIA [None]
  - PYELONEPHRITIS [None]
  - PYREXIA [None]
  - STOMATITIS [None]
